FAERS Safety Report 9742863 (Version 4)
Quarter: 2014Q1

REPORT INFORMATION
  Report Type: Spontaneous
  Country: US (occurrence: US)
  Receive Date: 20131210
  Receipt Date: 20140121
  Transmission Date: 20141002
  Serious: No
  Sender: FDA-Public Use
  Company Number: US-PFIZER INC-2013347614

PATIENT
  Age: 76 Year
  Sex: Female
  Weight: 53.52 kg

DRUGS (3)
  1. SUTENT [Suspect]
     Indication: GASTROINTESTINAL STROMAL TUMOUR
     Dosage: 50 MG DAILY (4 WEEKS ON/2 WEEKS OFF)
     Route: 048
     Dates: start: 20131015
  2. LISINOPRIL [Concomitant]
     Dosage: UNK
  3. LOVASTATIN [Concomitant]
     Dosage: UNK

REACTIONS (5)
  - Blood count abnormal [Recovered/Resolved]
  - Dysphagia [Not Recovered/Not Resolved]
  - Rash [Unknown]
  - Skin exfoliation [Unknown]
  - Oral pain [Unknown]
